FAERS Safety Report 9683608 (Version 1)
Quarter: 2013Q4

REPORT INFORMATION
  Report Type: Spontaneous
  Country: US (occurrence: None)
  Receive Date: 20131112
  Receipt Date: 20131112
  Transmission Date: 20140711
  Serious: Yes (Life-Threatening)
  Sender: FDA-Public Use
  Company Number: None

PATIENT
  Age: 44 Year
  Sex: Female
  Weight: 87 kg

DRUGS (9)
  1. VANCOMYCIN [Suspect]
     Indication: CLOSTRIDIUM DIFFICILE INFECTION
     Route: 048
     Dates: start: 20131106, end: 20131109
  2. ONDANSETRON [Concomitant]
  3. MORPHINE [Concomitant]
  4. ENOXAPARIN [Concomitant]
  5. METRONIDAZOLE [Concomitant]
  6. DIAZIDE [Concomitant]
  7. ALPRAZOLAM [Concomitant]
  8. POTASSIUM CHLORIDE [Concomitant]
  9. IBUPROFEN [Concomitant]

REACTIONS (3)
  - Angioedema [None]
  - Anaphylactic reaction [None]
  - Treatment failure [None]
